FAERS Safety Report 6580856-7 (Version None)
Quarter: 2010Q1

REPORT INFORMATION
  Report Type: 
  Country: None (occurrence: None)
  Receive Date: 20100203
  Receipt Date: 20100119
  Transmission Date: 20100710
  Serious: Yes (Death, Other)
  Sender: FDA-Public Use
  Company Number: 2009S1005291

PATIENT
  Age: 80 Year
  Sex: Female

DRUGS (10)
  1. PHOSPHOSODA FLAVOR NOT SPECIFIED [Suspect]
     Indication: COLONOSCOPY
     Dosage: ;PO
     Route: 048
     Dates: start: 20040111, end: 20040111
  2. ASPIRIN [Concomitant]
  3. SYNTHROID [Concomitant]
  4. AMITRIPTYLINE HCL [Concomitant]
  5. FOSAMAX [Concomitant]
  6. PRAVACHOL [Concomitant]
  7. RANITIDINE [Concomitant]
  8. CALCIUM [Concomitant]
  9. VITAMIN D [Concomitant]
  10. MAXIZE [Concomitant]

REACTIONS (3)
  - DIALYSIS [None]
  - RENAL FAILURE ACUTE [None]
  - RENAL INJURY [None]
